FAERS Safety Report 5886730-3 (Version None)
Quarter: 2008Q3

REPORT INFORMATION
  Report Type: 
  Country: None (occurrence: None)
  Receive Date: 20080917
  Receipt Date: 20080911
  Transmission Date: 20090109
  Serious: Yes (Hospitalization)
  Sender: FDA-Public Use
  Company Number: PHFR2007GB02314

PATIENT
  Sex: Female

DRUGS (15)
  1. CLOZARIL [Suspect]
     Indication: SCHIZOPHRENIA
     Dosage: 550 MG DAILY
     Route: 048
     Dates: start: 19950119
  2. CLOZARIL [Suspect]
     Dosage: 450MG/DAY
     Route: 048
  3. CLOZARIL [Suspect]
     Dosage: 325 MG/DAY
     Route: 048
  4. CLOZARIL [Suspect]
     Dosage: 300 MG/DAY
     Dates: start: 20080826
  5. FRUSEMIDE [Concomitant]
     Indication: CARDIAC FAILURE
     Dosage: 40 MG/DAY
     Route: 048
  6. FRUSEMIDE [Concomitant]
     Dosage: 160 MG/DAY
     Route: 048
  7. PAROXETINE HCL [Concomitant]
     Indication: DEPRESSION
     Dosage: 60 MG/DAY
     Route: 048
     Dates: start: 20040401
  8. AMISULPRIDE [Concomitant]
     Indication: SCHIZOPHRENIA
     Dosage: 400 MG/DAY
     Route: 048
     Dates: start: 20061011
  9. VALPROATE SODIUM [Concomitant]
     Indication: AFFECTIVE DISORDER
     Dosage: 2 G/DAY
     Route: 048
     Dates: start: 20040401
  10. PROCYCLIDINE HYDROCHLORIDE 2MG TAB [Concomitant]
     Indication: EXTRAPYRAMIDAL DISORDER
     Dosage: 5 MG/DAY
     Route: 048
     Dates: start: 20060206
  11. SIMVASTATIN [Concomitant]
     Indication: HYPERCHOLESTEROLAEMIA
     Dosage: 40 MG/DAY
     Route: 048
  12. SPIRONOLACTONE [Concomitant]
     Indication: HYPERTENSION
     Dosage: 25 MG/DAY
     Route: 048
  13. BISOPROLOL FUMARATE [Concomitant]
     Indication: HYPERTENSION
     Dosage: 2.5 MG/DAY
     Route: 048
  14. RAMIPRIL [Concomitant]
     Indication: HYPERTENSION
     Dosage: 5 MG/DAY
     Route: 048
  15. ASPIRIN [Concomitant]
     Indication: ANTICOAGULANT THERAPY
     Dosage: 75 MG/DAY
     Route: 048

REACTIONS (12)
  - ATRIAL FIBRILLATION [None]
  - BLOOD PROLACTIN INCREASED [None]
  - CARDIOMYOPATHY [None]
  - DIABETES MELLITUS [None]
  - DYSPNOEA [None]
  - LEFT VENTRICULAR DYSFUNCTION [None]
  - LEFT VENTRICULAR FAILURE [None]
  - LETHARGY [None]
  - MALAISE [None]
  - MOBILITY DECREASED [None]
  - PNEUMONIA [None]
  - URINARY INCONTINENCE [None]
